FAERS Safety Report 15262138 (Version 1)
Quarter: 2018Q3

REPORT INFORMATION
  Report Type: Spontaneous
  Country: BR (occurrence: BR)
  Receive Date: 20180809
  Receipt Date: 20180809
  Transmission Date: 20181010
  Serious: Yes (Death)
  Sender: FDA-Public Use
  Company Number: BR-SAKK-2018SA207924AA

PATIENT
  Sex: Female

DRUGS (1)
  1. CLEXANE [Suspect]
     Active Substance: ENOXAPARIN SODIUM
     Indication: THROMBOSIS
     Dosage: UNK UNK, UNK
     Route: 065
     Dates: start: 20171009

REACTIONS (4)
  - Foetal exposure during pregnancy [Unknown]
  - Cardiomyopathy neonatal [Fatal]
  - Renal impairment neonatal [Fatal]
  - Premature baby [Fatal]

NARRATIVE: CASE EVENT DATE: 20180311
